FAERS Safety Report 20887488 (Version 1)
Quarter: 2022Q2

REPORT INFORMATION
  Report Type: Report from Study
  Country: MX (occurrence: None)
  Receive Date: 20220528
  Receipt Date: 20220528
  Transmission Date: 20220721
  Serious: Yes (Death)
  Sender: FDA-Public Use
  Company Number: MX-Merck Healthcare KGaA-9325036

PATIENT
  Age: 67 Year
  Sex: Female

DRUGS (1)
  1. REBIF [Suspect]
     Active Substance: INTERFERON BETA-1A
     Indication: Multiple sclerosis
     Route: 058
     Dates: start: 20220520

REACTIONS (1)
  - Acute respiratory failure [Fatal]

NARRATIVE: CASE EVENT DATE: 20220522
